FAERS Safety Report 7500893-5 (Version None)
Quarter: 2011Q2

REPORT INFORMATION
  Report Type: 
  Country: None (occurrence: None)
  Receive Date: 20110524
  Receipt Date: 20110517
  Transmission Date: 20111010
  Serious: Yes (Hospitalization)
  Sender: FDA-Public Use
  Company Number: B0719480A

PATIENT
  Sex: Male

DRUGS (14)
  1. VANCOMYCINE HYDROCHLORIDE [Suspect]
     Route: 042
     Dates: start: 20110325, end: 20110419
  2. AMBISOME [Suspect]
     Route: 042
     Dates: start: 20110405, end: 20110414
  3. BACTRIM [Concomitant]
     Route: 048
  4. TRUVADA [Concomitant]
     Route: 065
  5. NEXIUM [Concomitant]
     Route: 065
  6. RETROVIR [Suspect]
     Indication: HIV INFECTION
     Route: 048
     Dates: start: 20110406, end: 20110415
  7. ACETAMINOPHEN [Concomitant]
     Route: 065
  8. ISENTRESS [Concomitant]
     Route: 065
     Dates: start: 20110404
  9. FOSCARNET [Concomitant]
     Route: 065
     Dates: start: 20110404
  10. LEDERFOLINE [Concomitant]
     Route: 065
     Dates: start: 20110404
  11. FUZEON [Concomitant]
     Route: 065
     Dates: start: 20110406
  12. FUNGIZONE [Concomitant]
     Route: 065
  13. ALUMINUM HYDROXIDE AND MAGNESIUM TRISILICATE [Concomitant]
     Route: 065
  14. RIFAMPIN AND ISONIAZID [Concomitant]
     Route: 065
     Dates: start: 20110406

REACTIONS (3)
  - AGRANULOCYTOSIS [None]
  - NEUTROPENIA [None]
  - LEUKOPENIA [None]
